FAERS Safety Report 21836293 (Version 1)
Quarter: 2023Q1

REPORT INFORMATION
  Report Type: Spontaneous
  Country: US (occurrence: US)
  Receive Date: 20230109
  Receipt Date: 20230109
  Transmission Date: 20230418
  Serious: No
  Sender: FDA-Public Use
  Company Number: US-TERSERA THERAPEUTICS LLC-2022TRS002027

PATIENT

DRUGS (4)
  1. PRIALT [Suspect]
     Active Substance: ZICONOTIDE ACETATE
     Indication: Pain
     Dosage: 4.60518 MCG, QD (CONCENTRATION: 8.5 MCG)
     Route: 037
  2. PRIALT [Suspect]
     Active Substance: ZICONOTIDE ACETATE
     Dosage: 4.72952 MCG, QD (CONCENTRATION: 10.5 MCG)
     Route: 037
     Dates: end: 20211216
  3. HYDROMORPHONE [Suspect]
     Active Substance: HYDROMORPHONE
     Indication: Pain
     Dosage: 0.65014 MG, QD (CONCENTRATION: 1.2 MG)
     Route: 037
  4. HYDROMORPHONE [Suspect]
     Active Substance: HYDROMORPHONE
     Dosage: 0.45043 MG, QD (CONCENTRATION: 1 MG)
     Route: 037

REACTIONS (5)
  - Parosmia [Recovered/Resolved]
  - Pain [Unknown]
  - Muscle spasms [Recovered/Resolved]
  - Insomnia [Recovered/Resolved]
  - Off label use [Unknown]
